FAERS Safety Report 7941711-0 (Version None)
Quarter: 2011Q4

REPORT INFORMATION
  Report Type: 
  Country: None (occurrence: None)
  Receive Date: 20111128
  Receipt Date: 20111128
  Transmission Date: 20120403
  Serious: No
  Sender: FDA-Public Use
  Company Number: None

PATIENT
  Age: 59 Year
  Sex: Female
  Weight: 64.863 kg

DRUGS (2)
  1. ZICAM [Suspect]
     Indication: EAR CONGESTION
     Dosage: 1 SPRAY IN EA. NOSTRIL
     Route: 045
     Dates: start: 20110611, end: 20110612
  2. ZICAM [Suspect]
     Indication: NASAL CONGESTION
     Dosage: 1 SPRAY IN EA. NOSTRIL
     Route: 045
     Dates: start: 20110611, end: 20110612

REACTIONS (3)
  - BURNING SENSATION [None]
  - HYPOGEUSIA [None]
  - HYPOSMIA [None]
